FAERS Safety Report 8120878-8 (Version None)
Quarter: 2012Q1

REPORT INFORMATION
  Report Type: 
  Country: None (occurrence: None)
  Receive Date: 20120203
  Receipt Date: 20120124
  Transmission Date: 20120608
  Serious: Yes (Disabling)
  Sender: FDA-Public Use
  Company Number: 2012BN000004

PATIENT
  Age: 53 Year
  Sex: Female

DRUGS (4)
  1. LACRILUBE OPHTHALMIC OIINTMENT [Concomitant]
  2. BORTEZOMIB [Suspect]
     Indication: PLASMACYTOMA
  3. MELPHALAN HYDROCHLORIDE [Suspect]
     Indication: PLASMACYTOMA
  4. PREDNISONE TAB [Suspect]
     Indication: PLASMACYTOMA

REACTIONS (10)
  - CONJUNCTIVAL OEDEMA [None]
  - PLASMACYTOMA [None]
  - FALL [None]
  - EXOPHTHALMOS [None]
  - LAGOPHTHALMOS [None]
  - BLINDNESS UNILATERAL [None]
  - EYEBALL RUPTURE [None]
  - OCULAR DISCOMFORT [None]
  - PERIORBITAL OEDEMA [None]
  - MYELOMA RECURRENCE [None]
